FAERS Safety Report 7777560-6 (Version None)
Quarter: 2011Q3

REPORT INFORMATION
  Report Type: 
  Country: None (occurrence: None)
  Receive Date: 20110926
  Receipt Date: 20110914
  Transmission Date: 20111222
  Serious: No
  Sender: FDA-Public Use
  Company Number: US-B.I. PHARMACEUTICALS,INC./RIDGEFIELD-2011-BP-22241BP

PATIENT
  Age: 71 Year
  Sex: Female

DRUGS (2)
  1. PRADAXA [Suspect]
     Indication: ATRIAL FIBRILLATION
     Dosage: 150 MG
     Route: 048
     Dates: start: 20110823
  2. PRADAXA [Suspect]
     Dosage: 75 MG
     Route: 048
     Dates: start: 20110823

REACTIONS (3)
  - SOMNOLENCE [None]
  - NIGHTMARE [None]
  - ABDOMINAL PAIN UPPER [None]
